FAERS Safety Report 25329529 (Version 1)
Quarter: 2025Q2

REPORT INFORMATION
  Report Type: Spontaneous
  Country: US (occurrence: US)
  Receive Date: 20250519
  Receipt Date: 20250519
  Transmission Date: 20250717
  Serious: No
  Sender: IPSEN BIOPHARMACEUTICALS, INC.
  Company Number: US-IPSEN Group, Research and Development-2025-10757

PATIENT
  Age: 68 Year
  Sex: Female
  Weight: 106.46 kg

DRUGS (14)
  1. TAZVERIK [Suspect]
     Active Substance: TAZEMETOSTAT HYDROBROMIDE
     Indication: Follicular lymphoma stage II
     Dosage: 800 MG TWICE DAILY
     Route: 048
     Dates: start: 20250127
  2. OYSTER CALCIUM/D3 [Concomitant]
  3. FOLIC ACID [Concomitant]
     Active Substance: FOLIC ACID
  4. FERROUS SULFATE [Concomitant]
     Active Substance: FERROUS SULFATE
  5. FISH OIL\OMEGA-3 FATTY ACIDS [Concomitant]
     Active Substance: FISH OIL\OMEGA-3 FATTY ACIDS
  6. OMEPRAZOLE [Concomitant]
     Active Substance: OMEPRAZOLE
  7. ENTRESTO [Concomitant]
     Active Substance: SACUBITRIL\VALSARTAN
  8. METOPROLOL SUCCINATE [Concomitant]
     Active Substance: METOPROLOL SUCCINATE
  9. LORATADINE [Concomitant]
     Active Substance: LORATADINE
  10. LYRICA [Concomitant]
     Active Substance: PREGABALIN
  11. CALCIUM [Concomitant]
     Active Substance: CALCIUM
  12. REFRESH P.M. [Concomitant]
     Active Substance: MINERAL OIL\PETROLATUM
  13. REFRESH OPTIVE MEGA-3 [Concomitant]
     Active Substance: CARBOXYMETHYLCELLULOSE SODIUM\GLYCERIN\POLYSORBATE 80
  14. FUROSEMIDE [Concomitant]
     Active Substance: FUROSEMIDE

REACTIONS (1)
  - Weight decreased [Not Recovered/Not Resolved]
